FAERS Safety Report 8020061-0 (Version None)
Quarter: 2012Q1

REPORT INFORMATION
  Report Type: 
  Country: None (occurrence: None)
  Receive Date: 20120103
  Receipt Date: 20111228
  Transmission Date: 20120608
  Serious: Yes (Other)
  Sender: FDA-Public Use
  Company Number: US-B.I. PHARMACEUTICALS,INC./RIDGEFIELD-2011-BP-27740PF

PATIENT
  Sex: Female

DRUGS (2)
  1. LIPITOR [Suspect]
  2. SPIRIVA [Suspect]
     Route: 065

REACTIONS (2)
  - BLINDNESS [None]
  - MACULAR DEGENERATION [None]
